FAERS Safety Report 7297979-X (Version None)
Quarter: 2011Q1

REPORT INFORMATION
  Report Type: 
  Country: None (occurrence: None)
  Receive Date: 20110217
  Receipt Date: 20110207
  Transmission Date: 20110831
  Serious: Yes (Other)
  Sender: FDA-Public Use
  Company Number: US-JNJFOC-20110202766

PATIENT
  Sex: Female
  Weight: 90.27 kg

DRUGS (5)
  1. DOXEPIN [Concomitant]
     Indication: ANTIDEPRESSANT THERAPY
     Route: 048
  2. MORPHINE [Concomitant]
     Indication: PAIN
     Route: 048
  3. REMICADE [Suspect]
     Route: 042
  4. REMICADE [Suspect]
     Indication: ANKYLOSING SPONDYLITIS
     Route: 042
  5. TRAMADOL [Concomitant]
     Indication: PAIN
     Route: 048

REACTIONS (10)
  - NECK PAIN [None]
  - ARTHRALGIA [None]
  - INFLAMMATION [None]
  - BACK PAIN [None]
  - DEMYELINATION [None]
  - MUSCULOSKELETAL DISORDER [None]
  - HYPOAESTHESIA [None]
  - SPINAL DISORDER [None]
  - PARAESTHESIA [None]
  - MUSCULOSKELETAL PAIN [None]
